FAERS Safety Report 5191361-7 (Version None)
Quarter: 2006Q4

REPORT INFORMATION
  Report Type: 
  Country: None (occurrence: None)
  Receive Date: 20061219
  Receipt Date: 20061211
  Transmission Date: 20070319
  Serious: Yes (Hospitalization)
  Sender: FDA-Public Use
  Company Number: HQWYE154419JUL06

PATIENT
  Age: 46 Year
  Sex: Male

DRUGS (3)
  1. ETODOLAC [Suspect]
     Indication: RHEUMATOID ARTHRITIS
     Dosage: 300 MG 1X PER 1 DAY ORAL
     Route: 048
     Dates: start: 20060613, end: 20060626
  2. AURANOFIN [Suspect]
     Indication: RHEUMATOID ARTHRITIS
     Dosage: 6 MG 1X PER 1 DAY ORAL
     Route: 048
     Dates: start: 20060529, end: 20060626
  3. BUCILLAMINE (BUCILLAMINE,) [Suspect]
     Indication: RHEUMATOID ARTHRITIS
     Dosage: 150 MG 1X PER 1 DAY ORAL
     Route: 048
     Dates: start: 20060529, end: 20060626

REACTIONS (6)
  - ABDOMINAL PAIN UPPER [None]
  - ANAEMIA [None]
  - BLOOD LACTATE DEHYDROGENASE INCREASED [None]
  - DYSPEPSIA [None]
  - FACE OEDEMA [None]
  - RENAL FAILURE ACUTE [None]
